FAERS Safety Report 15784999 (Version 2)
Quarter: 2019Q2

REPORT INFORMATION
  Report Type: Report from Study
  Country: BR (occurrence: BR)
  Receive Date: 20190103
  Receipt Date: 20190514
  Transmission Date: 20190711
  Serious: Yes (Other)
  Sender: FDA-Public Use
  Company Number: BR-TEVA-2019-BR-994542

PATIENT
  Sex: Female

DRUGS (10)
  1. OMEPRAZOLE 20MG [Concomitant]
     Active Substance: OMEPRAZOLE
     Dosage: 20 MILLIGRAM DAILY;
     Route: 065
  2. VITAMIN D 1000 IU [Concomitant]
     Dosage: 2 DROPS / DAY
     Route: 048
  3. AMITRIPTYLINE + LIDOCAINE GEL [Concomitant]
     Route: 065
  4. AMITRIPTYLINE 25MG [Concomitant]
     Active Substance: AMITRIPTYLINE
     Dosage: 25 MILLIGRAM DAILY;
     Route: 065
  5. COPAXONE [Suspect]
     Active Substance: GLATIRAMER ACETATE
     Indication: MULTIPLE SCLEROSIS
     Dosage: 20 MILLIGRAM DAILY; COPAXONE 20 MG/ML
     Dates: start: 2016
  6. GABAPENTIN 300MG [Concomitant]
     Active Substance: GABAPENTIN
     Dosage: 1200 MILLIGRAM DAILY;
     Route: 065
  7. BACLOFEN 10MG [Concomitant]
     Active Substance: BACLOFEN
     Dosage: 30 MILLIGRAM DAILY;
     Route: 065
  8. ATORVASTATIN 20MG [Concomitant]
     Active Substance: ATORVASTATIN
     Dosage: 2 TABLETS / DAY
     Route: 065
  9. DIPIRONE 500MG [Concomitant]
     Dosage: 2000 MILLIGRAM DAILY;
     Route: 065
  10. FOLIC ACID 5MG [Concomitant]
     Active Substance: FOLIC ACID
     Dosage: 5 MILLIGRAM DAILY;
     Route: 065

REACTIONS (4)
  - Injection site necrosis [Recovered/Resolved]
  - Injection site pain [Not Recovered/Not Resolved]
  - Injection site induration [Recovered/Resolved]
  - Injection site nodule [Recovered/Resolved]
